FAERS Safety Report 4943951-1 (Version None)
Quarter: 2006Q1

REPORT INFORMATION
  Report Type: 
  Country: None (occurrence: None)
  Receive Date: 20060313
  Receipt Date: 20060313
  Transmission Date: 20060701
  Serious: Yes (Life-Threatening, Hospitalization)
  Sender: FDA-Public Use
  Company Number: None

PATIENT
  Age: 21 Year
  Sex: Female
  Weight: 98 kg

DRUGS (4)
  1. FENTANYL [Suspect]
     Indication: ANAESTHESIA
     Dosage: 125 MCG/ML   ONCE  IV
     Route: 042
     Dates: start: 20060308, end: 20060308
  2. VENLAFAXINE HCL [Concomitant]
  3. FLUOXETINE HCL [Concomitant]
  4. DIVALPROATE [Concomitant]

REACTIONS (3)
  - DELAYED RECOVERY FROM ANAESTHESIA [None]
  - HEADACHE [None]
  - LOSS OF CONSCIOUSNESS [None]
